FAERS Safety Report 26044227 (Version 4)
Quarter: 2025Q4

REPORT INFORMATION
  Report Type: Report from Study
  Country: GB (occurrence: GB)
  Receive Date: 20251114
  Receipt Date: 20251212
  Transmission Date: 20260117
  Serious: Yes (Hospitalization)
  Sender: ABBVIE
  Company Number: GB-ABBVIE-6540983

PATIENT
  Age: 68 Year
  Sex: Male

DRUGS (1)
  1. FOSCARBIDOPA\FOSLEVODOPA [Suspect]
     Active Substance: FOSCARBIDOPA\FOSLEVODOPA
     Indication: Parkinson^s disease
     Dosage: INFUSE AS PER PUMP SETTING,?7 X PRODUODOPA 240MG/ML + 12MG/ML,?PRODUODOPA 240MG/ML + 12MG/ML PK7
     Route: 058
     Dates: start: 20250623

REACTIONS (10)
  - Musculoskeletal stiffness [Unknown]
  - Device occlusion [Recovered/Resolved]
  - General physical health deterioration [Unknown]
  - Incorrect dose administered [Unknown]
  - Infusion site discharge [Unknown]
  - Device issue [Unknown]
  - Freezing phenomenon [Unknown]
  - Speech disorder [Unknown]
  - Joint stiffness [Unknown]
  - Mobility decreased [Unknown]

NARRATIVE: CASE EVENT DATE: 20250101
